FAERS Safety Report 9661530 (Version 2)
Quarter: 2013Q4

REPORT INFORMATION
  Report Type: Spontaneous
  Country: US (occurrence: US)
  Receive Date: 20131031
  Receipt Date: 20131031
  Transmission Date: 20140711
  Serious: No
  Sender: FDA-Public Use
  Company Number: US-PURDUE-USA-2010-0052987

PATIENT
  Age: 53 Year
  Sex: Male

DRUGS (2)
  1. OXYCONTIN (NDA 22-272) [Suspect]
     Indication: PAIN
     Dosage: 40 MG, UNK
     Dates: start: 201009, end: 201101
  2. OXYCONTIN (NDA 22-272) [Suspect]
     Dosage: 80 MG, UNK

REACTIONS (10)
  - Hot flush [Unknown]
  - Faeces hard [Unknown]
  - Inadequate analgesia [Unknown]
  - Feeling abnormal [Unknown]
  - Nausea [Unknown]
  - Headache [Unknown]
  - Vision blurred [Unknown]
  - Vomiting [Unknown]
  - Drug ineffective [Unknown]
  - Feeling cold [Unknown]
